FAERS Safety Report 9110922 (Version 1)
Quarter: 2013Q1

REPORT INFORMATION
  Report Type: Spontaneous
  Country: US (occurrence: US)
  Receive Date: 20130219
  Receipt Date: 20130219
  Transmission Date: 20140127
  Serious: No
  Sender: FDA-Public Use
  Company Number: US-BRISTOL-MYERS SQUIBB COMPANY-16860173

PATIENT
  Age: 44 Year
  Sex: Female
  Weight: 95.24 kg

DRUGS (6)
  1. ORENCIA [Suspect]
     Indication: RHEUMATOID ARTHRITIS
     Dosage: STARTED LAST MONTH. DURATION: 4-5MONTHS
     Route: 042
     Dates: start: 2012
  2. CYMBALTA [Concomitant]
  3. LYRICA [Concomitant]
  4. TRAMADOL [Concomitant]
  5. NAPROSYN [Concomitant]
  6. SKELAXIN [Concomitant]

REACTIONS (1)
  - Fatigue [Not Recovered/Not Resolved]
